FAERS Safety Report 10066479 (Version 1)
Quarter: 2014Q2

REPORT INFORMATION
  Report Type: Spontaneous
  Country: JP (occurrence: JP)
  Receive Date: 20140408
  Receipt Date: 20140408
  Transmission Date: 20141212
  Serious: Yes (Other)
  Sender: FDA-Public Use
  Company Number: JP-B.I. PHARMACEUTICALS,INC./RIDGEFIELD-2014-BI-15191NB

PATIENT
  Age: 49 Year
  Sex: Male

DRUGS (6)
  1. PRAZAXA [Suspect]
     Indication: ATRIAL FIBRILLATION
     Dosage: 220 MG
     Route: 048
     Dates: start: 20140324, end: 20140326
  2. DIART [Suspect]
     Indication: PRODUCT USED FOR UNKNOWN INDICATION
     Dosage: 60 MG
     Route: 048
  3. SELARA [Suspect]
     Indication: PRODUCT USED FOR UNKNOWN INDICATION
     Dosage: 50 MG
     Route: 048
  4. TANATRIL [Suspect]
     Indication: PRODUCT USED FOR UNKNOWN INDICATION
     Dosage: 5 MG
     Route: 048
  5. PIMOBENDAN (PIMOBENDAN) [Concomitant]
     Dosage: 1.25 MG
     Route: 048
  6. ISOCORONAL R (ISOSORBIDE DINITRATE) [Concomitant]
     Route: 048

REACTIONS (1)
  - Cerebral infarction [Not Recovered/Not Resolved]
